FAERS Safety Report 12098627 (Version 4)
Quarter: 2016Q2

REPORT INFORMATION
  Report Type: Report from Study
  Country: US (occurrence: US)
  Receive Date: 20160222
  Receipt Date: 20160411
  Transmission Date: 20160815
  Serious: Yes (Other)
  Sender: FDA-Public Use
  Company Number: US-AMGEN-USASP2016020056

PATIENT
  Age: 63 Year
  Sex: Female

DRUGS (2)
  1. ENBREL [Suspect]
     Active Substance: ETANERCEPT
     Indication: RHEUMATOID ARTHRITIS
     Dosage: 50 MG, QWK
     Route: 065
     Dates: start: 20160129, end: 2016
  2. ENBREL [Suspect]
     Active Substance: ETANERCEPT
     Dosage: UNK
     Route: 065
     Dates: start: 2016

REACTIONS (10)
  - Arthritis [Unknown]
  - Pain in extremity [Not Recovered/Not Resolved]
  - Back pain [Recovered/Resolved]
  - Asthenia [Unknown]
  - Urine odour abnormal [Unknown]
  - Device issue [Unknown]
  - Sciatica [Recovered/Resolved]
  - Bone erosion [Unknown]
  - Peripheral swelling [Not Recovered/Not Resolved]
  - Joint dislocation [Unknown]

NARRATIVE: CASE EVENT DATE: 2016
